FAERS Safety Report 5475280-4 (Version None)
Quarter: 2007Q4

REPORT INFORMATION
  Report Type: 
  Country: None (occurrence: None)
  Receive Date: 20071002
  Receipt Date: 20070928
  Transmission Date: 20080405
  Serious: Yes (Other)
  Sender: FDA-Public Use
  Company Number: GB-MERCK-0710GBR00003

PATIENT
  Age: 75 Year
  Sex: Female
  Weight: 95 kg

DRUGS (3)
  1. ZOCOR [Suspect]
     Indication: BLOOD CHOLESTEROL INCREASED
     Route: 048
     Dates: start: 20070415, end: 20070419
  2. GLIPIZIDE [Concomitant]
     Route: 048
  3. METFORMIN [Concomitant]
     Route: 048

REACTIONS (4)
  - FACIAL PAIN [None]
  - LIP PAIN [None]
  - LIP SWELLING [None]
  - SWELLING FACE [None]
